FAERS Safety Report 6131661-7 (Version None)
Quarter: 2009Q1

REPORT INFORMATION
  Report Type: 
  Country: None (occurrence: None)
  Receive Date: 20090325
  Receipt Date: 20090120
  Transmission Date: 20090719
  Serious: Yes (Other)
  Sender: FDA-Public Use
  Company Number: US-BRISTOL-MYERS SQUIBB COMPANY-14477020

PATIENT
  Age: 57 Year
  Sex: Male
  Weight: 88 kg

DRUGS (2)
  1. ERBITUX [Suspect]
     Indication: HEAD AND NECK CANCER
     Dosage: RECHALLENGED WITH 200 MG ON 20-JAN-2009
     Route: 042
     Dates: start: 20090119, end: 20090119
  2. RADIATION THERAPY [Concomitant]

REACTIONS (3)
  - BLOOD PRESSURE DECREASED [None]
  - CHILLS [None]
  - URTICARIA [None]
